FAERS Safety Report 11465811 (Version 3)
Quarter: 2017Q3

REPORT INFORMATION
  Report Type: Spontaneous
  Country: IN (occurrence: IN)
  Receive Date: 20150907
  Receipt Date: 20170811
  Transmission Date: 20171127
  Serious: Yes (Death, Hospitalization)
  Sender: FDA-Public Use
  Company Number: PHHY2015IN106318

PATIENT
  Age: 42 Year
  Sex: Female

DRUGS (3)
  1. ZOLEDRONIC ACID [Suspect]
     Active Substance: ZOLEDRONIC ACID
     Indication: GALLBLADDER CANCER
     Route: 065
  2. GEMCITABINE [Suspect]
     Active Substance: GEMCITABINE\GEMCITABINE HYDROCHLORIDE
     Indication: GALLBLADDER CANCER
     Dosage: 100 MG/M2, DAY8, Q3 WEEKLY
     Route: 065
  3. DOCETAXEL. [Suspect]
     Active Substance: DOCETAXEL
     Indication: GALLBLADDER CANCER
     Dosage: 900 MG/M2, DAYS1 AND 8; Q3 WEEK
     Route: 065

REACTIONS (3)
  - Neutropenia [Fatal]
  - Gallbladder cancer [Fatal]
  - Disease progression [Fatal]
